FAERS Safety Report 9257301 (Version 1)
Quarter: 2013Q2

REPORT INFORMATION
  Report Type: Report from Study
  Country: IN (occurrence: IN)
  Receive Date: 20130426
  Receipt Date: 20130426
  Transmission Date: 20140414
  Serious: Yes (Death)
  Sender: FDA-Public Use
  Company Number: PHHY2012IN001679

PATIENT
  Sex: Female

DRUGS (4)
  1. GLIVEC [Suspect]
     Indication: CHRONIC MYELOID LEUKAEMIA
     Dosage: 600 MG,UNK
     Route: 048
  2. GLIVEC [Suspect]
     Dosage: 400 MG, UNK
     Route: 048
  3. GLIVEC [Suspect]
     Dosage: 800 MG, UNK
     Route: 048
     Dates: start: 20120423
  4. GLIVEC [Suspect]
     Dosage: 400 MG, UNK

REACTIONS (4)
  - Death [Fatal]
  - Full blood count decreased [Unknown]
  - Pyrexia [Unknown]
  - Therapeutic response decreased [Unknown]
